FAERS Safety Report 7595690-9 (Version None)
Quarter: 2011Q3

REPORT INFORMATION
  Report Type: 
  Country: None (occurrence: None)
  Receive Date: 20110707
  Receipt Date: 20110629
  Transmission Date: 20111222
  Serious: Yes (Hospitalization, Other)
  Sender: FDA-Public Use
  Company Number: US-ELI_LILLY_AND_COMPANY-US201002003770

PATIENT
  Sex: Female
  Weight: 81.633 kg

DRUGS (15)
  1. BYETTA [Suspect]
     Dosage: 5 UG, BID
     Route: 058
     Dates: start: 20060101, end: 20070101
  2. EFFEXOR [Concomitant]
     Dosage: 75 MG, EACH MORNING
     Route: 048
  3. RISPERDAL [Concomitant]
     Dosage: 1 MG, EACH MORNING
     Route: 048
  4. RAZADYNE [Concomitant]
     Dosage: 16 MG, EACH MORNING
     Route: 048
  5. TRAMADOL HCL [Concomitant]
     Dosage: 150 MG, TID
     Route: 048
  6. BYETTA [Suspect]
     Dosage: 10 UG, BID
  7. ASPIRIN [Concomitant]
     Dosage: 81 MG, QD
     Route: 048
  8. METFORMIN HCL [Concomitant]
     Indication: DIABETES MELLITUS
     Dosage: 850 MG, TID
     Route: 048
  9. CRESTOR [Concomitant]
     Dosage: 1 DF, EACH EVENING
     Route: 048
  10. LORAZEPAM [Concomitant]
     Indication: ANXIETY
     Dosage: 0.5 MG, EACH EVENING
     Route: 048
  11. DOXEPIN [Concomitant]
     Indication: DEPRESSION
  12. GLYBURIDE [Concomitant]
     Dosage: 10 MG, BID
     Route: 048
  13. AVANDIA [Concomitant]
     Dosage: 8 MG, EACH EVENING
  14. TRAZODONE HCL [Concomitant]
     Dosage: 50 MG, EACH EVENING
     Route: 048
  15. HUMULIN R [Concomitant]
     Indication: DIABETES MELLITUS

REACTIONS (4)
  - BILIARY CIRRHOSIS PRIMARY [None]
  - OFF LABEL USE [None]
  - WEIGHT DECREASED [None]
  - PANCREATITIS [None]
